FAERS Safety Report 24269796 (Version 1)
Quarter: 2024Q3

REPORT INFORMATION
  Report Type: Spontaneous
  Country: ZA (occurrence: None)
  Receive Date: 20240830
  Receipt Date: 20240830
  Transmission Date: 20241017
  Serious: Yes (Hospitalization, Other)
  Sender: ASTRAZENECA
  Company Number: 2024A194462

PATIENT
  Age: 86 Year
  Sex: Male

DRUGS (8)
  1. BUDESONIDE\FORMOTEROL [Suspect]
     Active Substance: BUDESONIDE\FORMOTEROL
     Indication: Asthma
     Dosage: UNKNOWN UNKNOWN
     Route: 055
  2. SPIRACTIN 25 MG [Concomitant]
     Indication: Hypertension
  3. AUSTELL ALLOPURINOL 300 MG [Concomitant]
     Indication: Gout
  4. DEFULIDE 40 MG [Concomitant]
     Indication: Hypertension
  5. ECOTRIN 81 MG [Concomitant]
     Indication: Thrombosis
  6. ISMO 20 MG [Concomitant]
     Indication: Angina pectoris
  7. LIPOGEN 10 MG [Concomitant]
     Indication: Blood cholesterol
  8. EUTHYROX [Concomitant]
     Active Substance: LEVOTHYROXINE SODIUM
     Indication: Hypothyroidism

REACTIONS (1)
  - Aneurysm [Unknown]
